FAERS Safety Report 21418022 (Version 1)
Quarter: 2022Q4

REPORT INFORMATION
  Report Type: Report from Study
  Country: CA (occurrence: CA)
  Receive Date: 20221006
  Receipt Date: 20221006
  Transmission Date: 20230113
  Serious: Yes (Death, Other)
  Sender: FDA-Public Use
  Company Number: CA-GLAXOSMITHKLINE-CA2022AMR142594

PATIENT

DRUGS (1)
  1. MEPOLIZUMAB [Suspect]
     Active Substance: MEPOLIZUMAB
     Indication: Asthma
     Dosage: 100 ML, Z (100MG/SC EVERY 4 WEEKS)
     Route: 058
     Dates: start: 20200806

REACTIONS (2)
  - Hepatic failure [Fatal]
  - Hepatic cirrhosis [Fatal]
